FAERS Safety Report 14243972 (Version 1)
Quarter: 2017Q4

REPORT INFORMATION
  Report Type: Spontaneous
  Country: JP (occurrence: JP)
  Receive Date: 20171201
  Receipt Date: 20171201
  Transmission Date: 20180321
  Serious: Yes (Other)
  Sender: FDA-Public Use
  Company Number: JP-GLAXOSMITHKLINE-JP2017JPN181406

PATIENT
  Age: 64 Year
  Sex: Male

DRUGS (6)
  1. VIDEX [Concomitant]
     Active Substance: DIDANOSINE
     Indication: HIV INFECTION
     Dosage: UNK
  2. EPIVIR [Suspect]
     Active Substance: LAMIVUDINE
     Indication: HIV INFECTION
     Dosage: UNK
     Route: 048
  3. ZERIT [Concomitant]
     Active Substance: STAVUDINE
     Indication: HIV INFECTION
     Dosage: UNK
  4. EPZICOM [Suspect]
     Active Substance: ABACAVIR SULFATE\LAMIVUDINE
     Indication: HIV INFECTION
     Dosage: UNK
     Route: 048
  5. VIRACEPT [Concomitant]
     Active Substance: NELFINAVIR MESYLATE
     Indication: HIV INFECTION
     Dosage: UNK
  6. KALETRA [Concomitant]
     Active Substance: LOPINAVIR\RITONAVIR
     Indication: HIV INFECTION
     Dosage: UNK

REACTIONS (10)
  - Polyglandular autoimmune syndrome type III [Unknown]
  - Glycosylated haemoglobin increased [Unknown]
  - Polydipsia [Unknown]
  - Thirst [Unknown]
  - Neuropathy peripheral [Unknown]
  - Autoimmune thyroiditis [Unknown]
  - Latent autoimmune diabetes in adults [Unknown]
  - Beta 2 microglobulin increased [Unknown]
  - Diabetic nephropathy [Unknown]
  - Blood glucose abnormal [Unknown]
